FAERS Safety Report 8836383 (Version 1)
Quarter: 2012Q4

REPORT INFORMATION
  Report Type: 
  Country: US (occurrence: US)
  Receive Date: 20121011
  Receipt Date: 20121011
  Transmission Date: 20130627
  Serious: No
  Sender: FDA-Public Use
  Company Number: US-NOVEN-12US005079

PATIENT
  Age: 51 None
  Sex: Female

DRUGS (4)
  1. FENTANYL [Suspect]
     Indication: PAIN
     Dosage: 100 ug/hr, UNK
     Route: 062
     Dates: start: 20120806
  2. TRAMADOL [Concomitant]
     Indication: PAIN
  3. BENICAR [Concomitant]
     Indication: BLOOD PRESSURE
  4. CYMBALTA [Concomitant]
     Indication: FIBROMYALGIA

REACTIONS (3)
  - Inadequate analgesia [Not Recovered/Not Resolved]
  - Drug administration error [Not Recovered/Not Resolved]
  - Product quality issue [Not Recovered/Not Resolved]
